FAERS Safety Report 10274613 (Version 2)
Quarter: 2014Q3

REPORT INFORMATION
  Report Type: Spontaneous
  Country: JP (occurrence: JP)
  Receive Date: 20140702
  Receipt Date: 20140708
  Transmission Date: 20150326
  Serious: Yes (Death, Hospitalization)
  Sender: FDA-Public Use
  Company Number: PHHY2014JP080484

PATIENT
  Age: 66 Year
  Sex: Male

DRUGS (2)
  1. PREDONINE [Suspect]
     Active Substance: PREDNISOLONE\PREDNISOLONE ACETATE\PREDNISOLONE SODIUM SUCCINATE
     Indication: APLASIA PURE RED CELL
     Dosage: 25 MG, DAILY
     Route: 048
     Dates: start: 201108, end: 201403
  2. NEORAL [Suspect]
     Active Substance: CYCLOSPORINE
     Indication: APLASIA PURE RED CELL
     Dosage: 250 MG, DAILY
     Route: 048
     Dates: start: 201108, end: 201403

REACTIONS (4)
  - Fall [Unknown]
  - Gastric ulcer [Recovered/Resolved]
  - Cerebral infarction [Fatal]
  - Cytomegalovirus infection [Recovered/Resolved]

NARRATIVE: CASE EVENT DATE: 20131219
